FAERS Safety Report 19273819 (Version 1)
Quarter: 2021Q2

REPORT INFORMATION
  Report Type: Spontaneous
  Country: US (occurrence: US)
  Receive Date: 20210518
  Receipt Date: 20210518
  Transmission Date: 20210717
  Serious: Yes (Other)
  Sender: FDA-Public Use
  Company Number: None

PATIENT
  Age: 18 Year
  Sex: Male
  Weight: 72 kg

DRUGS (9)
  1. MESNA 1080 MG/M2 IV DAILY DAYS 1?5, REPEAT EVERY 4 WEEKS [Concomitant]
     Dates: start: 20200929, end: 20210511
  2. IFOSFAMIDE 1800 MG/M2 IV DAILY DAYS 1?5 [Concomitant]
     Dates: start: 20200929, end: 20210511
  3. DOXORUBICIN 37.5 MG/M2 IV X1?2 DAYS EVERY 4 WEEKS [Concomitant]
     Dates: start: 20200929, end: 20210511
  4. ETOPOSIDE. [Suspect]
     Active Substance: ETOPOSIDE
     Indication: EWING^S SARCOMA
     Route: 042
     Dates: start: 20210406, end: 20210407
  5. ETOPOSIDE. [Suspect]
     Active Substance: ETOPOSIDE
     Indication: EWING^S SARCOMA
     Route: 042
     Dates: start: 20210507, end: 20210507
  6. DEXRAZOXANE 375 MG/M2 IV X1?2 DAYS EVERY 4 WEEKS [Concomitant]
     Dates: start: 20200929, end: 20210511
  7. CYCLOPHOSPHAMIDE 1200 MG/M2 IV DAYS 1?5, REPEAT EVERY 4 WEEKS [Concomitant]
     Dates: start: 20200929, end: 20210511
  8. VINCRISTINE 2 MG/M2 IV EVERY 4 WEEKS [Concomitant]
     Dates: start: 20200929, end: 20210511
  9. NEULASTA 6MG SUBQ 24HR AFTER CHEMO EVERY 2 WEEKS [Concomitant]
     Dates: start: 20200929, end: 20210511

REACTIONS (5)
  - Hypotension [None]
  - Throat tightness [None]
  - Flushing [None]
  - Product quality issue [None]
  - Cough [None]

NARRATIVE: CASE EVENT DATE: 20210406
